FAERS Safety Report 25231466 (Version 1)
Quarter: 2025Q2

REPORT INFORMATION
  Report Type: Report from Study
  Country: US (occurrence: US)
  Receive Date: 20250423
  Receipt Date: 20250423
  Transmission Date: 20250716
  Serious: Yes (Other)
  Sender: ROCHE
  Company Number: US-ROCHE-10000261557

PATIENT
  Sex: Female
  Weight: 88.9 kg

DRUGS (4)
  1. OCREVUS [Suspect]
     Active Substance: OCRELIZUMAB
     Indication: Relapsing-remitting multiple sclerosis
     Route: 042
     Dates: start: 202403
  2. TYSABRI [Concomitant]
     Active Substance: NATALIZUMAB
  3. COPAXONE [Concomitant]
     Active Substance: GLATIRAMER ACETATE
  4. BETASERON [Concomitant]
     Active Substance: INTERFERON BETA-1B

REACTIONS (3)
  - Multiple sclerosis relapse [Not Recovered/Not Resolved]
  - White blood cell count decreased [Unknown]
  - Red blood cell count increased [Unknown]
